FAERS Safety Report 25571585 (Version 4)
Quarter: 2025Q4

REPORT INFORMATION
  Report Type: Spontaneous
  Country: US (occurrence: US)
  Receive Date: 20250717
  Receipt Date: 20251008
  Transmission Date: 20260118
  Serious: Yes (Other)
  Sender: BAYER HEALTHCARE PHARMACEUTICALS INC.
  Company Number: US-BAYER-2025A091585

PATIENT
  Age: 33 Year
  Sex: Male
  Weight: 214 kg

DRUGS (9)
  1. KOVALTRY [Suspect]
     Active Substance: ANTIHEMOPHILIC FACTOR, HUMAN RECOMBINANT
     Indication: Factor VIII deficiency
     Dosage: STRENGTH: 3000: INFUSED 3000 U: 2 TIMES A WEEK + PRN
     Route: 042
     Dates: start: 202308
  2. KOVALTRY [Suspect]
     Active Substance: ANTIHEMOPHILIC FACTOR, HUMAN RECOMBINANT
     Indication: Factor VIII deficiency
     Dosage: STRENGTH: 500: INFUSED 1000 U: 2 TIMES A WEEK + PRN
     Route: 042
     Dates: start: 202308
  3. KOVALTRY [Suspect]
     Active Substance: ANTIHEMOPHILIC FACTOR, HUMAN RECOMBINANT
     Indication: Factor VIII deficiency
     Dosage: STRENGTH 500U: INFUSE~ 4000 (3600-4400) UNITS TWO DAYS PER WEEK +PRN
     Route: 042
     Dates: start: 202309
  4. KOVALTRY [Suspect]
     Active Substance: ANTIHEMOPHILIC FACTOR, HUMAN RECOMBINANT
     Indication: Factor VIII deficiency
     Dosage: STRENGTH 3000U: INFUSE~ 4000 (3600-4400) UNITS TWO DAYS PER WEEK +PRN
     Route: 042
     Dates: start: 202309
  5. KOVALTRY [Suspect]
     Active Substance: ANTIHEMOPHILIC FACTOR, HUMAN RECOMBINANT
     Indication: Factor VIII deficiency
     Dosage: STRENGTH 2000U: INFUSE~ 4000 (3600-4400) UNITS TWO DAYS PER WEEK +PRN
     Route: 042
     Dates: start: 202309
  6. KOVALTRY [Suspect]
     Active Substance: ANTIHEMOPHILIC FACTOR, HUMAN RECOMBINANT
     Indication: Factor VIII deficiency
     Dosage: HE HAS USED 2 DOSES SO FAR TO TREAT + WILL BE USING 3RD DOSE TOMORROW.
     Route: 042
     Dates: start: 20250707, end: 20250707
  7. KOVALTRY [Suspect]
     Active Substance: ANTIHEMOPHILIC FACTOR, HUMAN RECOMBINANT
     Indication: Factor VIII deficiency
     Dosage: USED 2 DOSES TO TREAT
     Route: 042
     Dates: start: 20250728, end: 20250728
  8. KOVALTRY [Suspect]
     Active Substance: ANTIHEMOPHILIC FACTOR, HUMAN RECOMBINANT
     Indication: Factor VIII deficiency
     Dosage: 4 DOSES OF 2000U ON HAND
  9. SODIUM CHLORIDE [Concomitant]
     Active Substance: SODIUM CHLORIDE
     Dosage: UNK

REACTIONS (8)
  - Haemarthrosis [None]
  - Haemorrhage [None]
  - Haemorrhage [Not Recovered/Not Resolved]
  - Traumatic haemorrhage [Recovered/Resolved]
  - Haemorrhage [Recovered/Resolved]
  - Haemarthrosis [Recovered/Resolved]
  - Peripheral swelling [None]
  - Back injury [None]

NARRATIVE: CASE EVENT DATE: 20250601
